FAERS Safety Report 8463779-8 (Version None)
Quarter: 2012Q2

REPORT INFORMATION
  Report Type: 
  Country: None (occurrence: None)
  Receive Date: 20120625
  Receipt Date: 20120529
  Transmission Date: 20120825
  Serious: Yes (Hospitalization)
  Sender: FDA-Public Use
  Company Number: AT-ROCHE-1069887

PATIENT
  Age: 86 Year
  Sex: Male
  Weight: 66 kg

DRUGS (2)
  1. VEMURAFENIB [Suspect]
     Route: 048
     Dates: end: 20120523
  2. VEMURAFENIB [Suspect]
     Indication: MALIGNANT MELANOMA
     Dosage: LAST DOSE PRIOR TO SAE ON 14/MAY/2012
     Route: 048
     Dates: start: 20120126, end: 20120515

REACTIONS (2)
  - HERPES ZOSTER [None]
  - MELANOMATOUS MENINGITIS [None]
